FAERS Safety Report 5485742-1 (Version None)
Quarter: 2007Q4

REPORT INFORMATION
  Report Type: 
  Country: None (occurrence: None)
  Receive Date: 20071015
  Receipt Date: 20071004
  Transmission Date: 20080405
  Serious: Yes (Hospitalization)
  Sender: FDA-Public Use
  Company Number: US-ROCHE-518085

PATIENT
  Age: 74 Year
  Sex: Male
  Weight: 79.8 kg

DRUGS (8)
  1. BONIVA [Suspect]
     Indication: OSTEOPENIA
     Route: 048
     Dates: start: 20070801
  2. METROGEL [Concomitant]
     Route: 061
  3. VOLTAREN [Concomitant]
  4. CIALIS [Concomitant]
  5. AMBIEN [Concomitant]
  6. WARFARIN SODIUM [Concomitant]
  7. LIPITOR [Concomitant]
  8. METOPROLOL [Concomitant]

REACTIONS (1)
  - ATRIAL FIBRILLATION [None]
